FAERS Safety Report 6586694-3 (Version None)
Quarter: 2010Q1

REPORT INFORMATION
  Report Type: 
  Country: None (occurrence: None)
  Receive Date: 20100217
  Receipt Date: 20090707
  Transmission Date: 20100710
  Serious: No
  Sender: FDA-Public Use
  Company Number: US-ALLERGAN-0909390US

PATIENT
  Age: 39 Year
  Sex: Female

DRUGS (1)
  1. BOTOX COSMETIC [Suspect]
     Indication: SKIN WRINKLING
     Dosage: UNK, SINGLE
     Route: 065
     Dates: start: 20090702, end: 20090702

REACTIONS (4)
  - FACIAL PARESIS [None]
  - SKIN DISORDER [None]
  - SKIN TIGHTNESS [None]
  - SWOLLEN TONGUE [None]
